FAERS Safety Report 5649431-2 (Version None)
Quarter: 2008Q1

REPORT INFORMATION
  Report Type: 
  Country: None (occurrence: None)
  Receive Date: 20080131
  Receipt Date: 20071218
  Transmission Date: 20080703
  Serious: Yes (Other)
  Sender: FDA-Public Use
  Company Number: US200712000275

PATIENT
  Age: 53 Year
  Sex: Female
  Weight: 71.7 kg

DRUGS (6)
  1. BYETTA [Suspect]
     Dosage: 5 UG, SUBCUTANEOUS ; 10 UG, 2/D, SUBCUTANEOUS
     Route: 058
     Dates: start: 20071001, end: 20071113
  2. BYETTA [Suspect]
     Dosage: 5 UG, SUBCUTANEOUS ; 10 UG, 2/D, SUBCUTANEOUS
     Route: 058
     Dates: start: 20071114, end: 20071114
  3. HYZAAR [Concomitant]
  4. METFORMIN /00082701/ (METFORMIN) [Concomitant]
  5. AVANDIA [Concomitant]
  6. GLIPIZIDE [Concomitant]

REACTIONS (3)
  - BLOOD PRESSURE INCREASED [None]
  - HYPERSENSITIVITY [None]
  - INJECTION SITE ERYTHEMA [None]
